FAERS Safety Report 6097824-4 (Version None)
Quarter: 2009Q1

REPORT INFORMATION
  Report Type: 
  Country: None (occurrence: None)
  Receive Date: 20090227
  Receipt Date: 20090223
  Transmission Date: 20090719
  Serious: Yes (Life-Threatening)
  Sender: FDA-Public Use
  Company Number: NL-ASTRAZENECA-2009AC00622

PATIENT
  Age: 43 Year
  Sex: Female

DRUGS (5)
  1. SYMBICORT [Suspect]
     Dosage: 400/12 ONCE DAILY
     Route: 055
     Dates: end: 20081201
  2. SYMBICORT [Suspect]
     Dosage: 400/12 ONCE DAILY
     Route: 055
     Dates: start: 20081201
  3. DEPAKENE [Concomitant]
     Indication: EPILEPSY
  4. PREDNISONE [Concomitant]
  5. OXIS [Concomitant]
     Route: 055

REACTIONS (8)
  - BRAIN DEATH [None]
  - CARDIAC ARREST [None]
  - DYSPNOEA [None]
  - FALL [None]
  - GENERAL PHYSICAL HEALTH DETERIORATION [None]
  - INFLUENZA [None]
  - SYNCOPE [None]
  - URINARY INCONTINENCE [None]
